FAERS Safety Report 7568461-7 (Version None)
Quarter: 2011Q2

REPORT INFORMATION
  Report Type: 
  Country: None (occurrence: None)
  Receive Date: 20110623
  Receipt Date: 20110609
  Transmission Date: 20111010
  Serious: No
  Sender: FDA-Public Use
  Company Number: CA-ELI_LILLY_AND_COMPANY-CA201106002555

PATIENT
  Sex: Male

DRUGS (6)
  1. ZYPREXA [Suspect]
     Dosage: 10 MG, QD
  2. DALMANE [Concomitant]
  3. ZYPREXA [Suspect]
     Indication: SCHIZOPHRENIA, PARANOID TYPE
     Dosage: 5 MG, QD
     Dates: start: 19980527
  4. ZYPREXA [Suspect]
     Dosage: 7.5 MG, QD
  5. RISPERDAL [Concomitant]
  6. STELAZINE [Concomitant]

REACTIONS (5)
  - HYPERTENSION [None]
  - DYSLIPIDAEMIA [None]
  - TYPE 2 DIABETES MELLITUS [None]
  - ANAEMIA [None]
  - HAEMATURIA [None]
